FAERS Safety Report 3700241 (Version 6)
Quarter: 2015Q2

REPORT INFORMATION
  Report Type: Spontaneous
  Country: JP (occurrence: None)
  Receive Date: 20010820
  Receipt Date: 20150504
  Transmission Date: 20150821
  Serious: Yes (Death)
  Sender: FDA-Public Use
  Company Number: 2001003411-FJ

PATIENT
  Age: 46 Year
  Sex: Male

DRUGS (6)
  1. PREDNISOLONE. [Concomitant]
     Active Substance: PREDNISOLONE
  2. ENDOXAN /00021101/ (CYCLOPHOSPHAMIDE) [Concomitant]
     Active Substance: CYCLOPHOSPHAMIDE
     Route: 048
     Dates: start: 200105, end: 20010524
  3. FOY (GABEXATE MESILATE) [Concomitant]
  4. ALPROSTADIL ALFADEX [Concomitant]
     Active Substance: ALPROSTADIL ALFADEX
  5. PROGRAF [Suspect]
     Active Substance: TACROLIMUS\TACROLIMUS ANHYDROUS
     Indication: LIVER TRANSPLANT
     Dates: start: 200105, end: 20010518
  6. METHYLPREDNISOLONE SODIUM SUCCINATE. [Concomitant]
     Active Substance: METHYLPREDNISOLONE SODIUM SUCCINATE

REACTIONS (12)
  - Intra-abdominal haemorrhage [None]
  - Altered state of consciousness [None]
  - Haemolytic anaemia [None]
  - Cerebral haemorrhage [None]
  - Brain death [None]
  - Hyperbilirubinaemia [None]
  - Thrombotic microangiopathy [None]
  - Thrombocytopenia [None]
  - Retroperitoneal haematoma [None]
  - Coagulopathy [None]
  - Renal impairment [None]
  - Continuous haemodiafiltration [None]

NARRATIVE: CASE EVENT DATE: 20010524
